FAERS Safety Report 6995860-4 (Version None)
Quarter: 2010Q3

REPORT INFORMATION
  Report Type: 
  Country: None (occurrence: None)
  Receive Date: 20100918
  Receipt Date: 20081105
  Transmission Date: 20110219
  Serious: No
  Sender: FDA-Public Use
  Company Number: US-WYE-H06670008

PATIENT
  Sex: Male

DRUGS (2)
  1. EFFEXOR XR [Suspect]
     Dosage: UNKNOWN
     Route: 048
     Dates: start: 20070101, end: 20080101
  2. WELLBUTRIN [Suspect]
     Dosage: UNKNOWN
     Route: 048

REACTIONS (1)
  - TESTICULAR ATROPHY [None]
